FAERS Safety Report 8716487 (Version 3)
Quarter: 2013Q3

REPORT INFORMATION
  Report Type: Spontaneous
  Country: US (occurrence: US)
  Receive Date: 20120810
  Receipt Date: 20130725
  Transmission Date: 20140515
  Serious: Yes (Life-Threatening, Hospitalization, Other)
  Sender: FDA-Public Use
  Company Number: US-009507513-1208USA001887

PATIENT
  Age: 26 Year
  Sex: Female
  Weight: 49.89 kg

DRUGS (1)
  1. NUVARING [Suspect]
     Indication: CONTRACEPTION
     Dosage: 0.120MG/DAY OF ETONOGESTREL AND 0. 015 MG/DAY OF ETHINYL ESTRADIOL/21 DAYS
     Route: 067
     Dates: start: 2010

REACTIONS (1)
  - Pulmonary embolism [Recovered/Resolved]
